FAERS Safety Report 17238819 (Version 2)
Quarter: 2020Q1

REPORT INFORMATION
  Report Type: Report from Study
  Country: FR (occurrence: FR)
  Receive Date: 20200106
  Receipt Date: 20200204
  Transmission Date: 20200409
  Serious: Yes (Death, Hospitalization)
  Sender: FDA-Public Use
  Company Number: FR-MYLANLABS-2020M1001420

PATIENT
  Age: 68 Year
  Sex: Female
  Weight: 84 kg

DRUGS (27)
  1. ACITRETIN. [Suspect]
     Active Substance: ACITRETIN
     Indication: PRODUCT USED FOR UNKNOWN INDICATION
     Dosage: 25 MILLIGRAM, QD
     Route: 048
     Dates: start: 20160704, end: 20160909
  2. ACITRETIN. [Suspect]
     Active Substance: ACITRETIN
     Dosage: 20 MILLIGRAM, QD
     Route: 048
     Dates: start: 20180126, end: 20180323
  3. REMICADE [Suspect]
     Active Substance: INFLIXIMAB
     Indication: PRODUCT USED FOR UNKNOWN INDICATION
     Dosage: 420 MILLIGRAM, EVERY EIGHT WEEKS
     Route: 042
     Dates: start: 20150529
  4. DAIVOBET [Concomitant]
     Active Substance: BETAMETHASONE DIPROPIONATE\CALCIPOTRIENE
     Indication: PRODUCT USED FOR UNKNOWN INDICATION
     Dosage: UNK
     Dates: start: 20151126
  5. NERISONE [Concomitant]
     Active Substance: DIFLUCORTOLONE VALERATE
     Dosage: UNK
     Dates: start: 20180323, end: 20180423
  6. COLD CREAM NATUREL [Concomitant]
     Indication: PRODUCT USED FOR UNKNOWN INDICATION
     Dosage: UNK
     Dates: start: 20150408
  7. GLYCEROTONE                        /00200601/ [Concomitant]
     Indication: PRODUCT USED FOR UNKNOWN INDICATION
     Dosage: UNK
     Dates: start: 20180323
  8. FLECAINE [Concomitant]
     Active Substance: FLECAINIDE
     Indication: PRODUCT USED FOR UNKNOWN INDICATION
     Dosage: UNK
     Dates: start: 20170728
  9. STELARA [Suspect]
     Active Substance: USTEKINUMAB
     Dosage: 90 MG, CYCLIC EVERY 8 WEEKS
     Route: 058
     Dates: start: 20180126, end: 20180323
  10. REMICADE [Suspect]
     Active Substance: INFLIXIMAB
     Dosage: 420 MILLIGRAM, EVERY 4 WEEKS
     Route: 042
     Dates: start: 20150618, end: 20150716
  11. DERMOVAL                           /00008501/ [Concomitant]
     Active Substance: CLOBETASOL PROPIONATE
     Indication: PRODUCT USED FOR UNKNOWN INDICATION
     Dosage: UNK
     Dates: start: 20150408
  12. CICLOSPORINE [Suspect]
     Active Substance: CYCLOSPORINE
     Indication: PRODUCT USED FOR UNKNOWN INDICATION
     Dosage: 15 MG, WEEKLY
     Route: 058
     Dates: start: 20180323
  13. STELARA [Suspect]
     Active Substance: USTEKINUMAB
     Indication: PRODUCT USED FOR UNKNOWN INDICATION
     Dosage: 90 MG, CYCLIC EVERY 10 WEEKS
     Route: 058
     Dates: start: 20171027, end: 20180126
  14. STELARA [Suspect]
     Active Substance: USTEKINUMAB
     Dosage: 90 MG, CYCLIC EVERY 4 WEEKS
     Route: 058
     Dates: start: 20170728, end: 20170828
  15. STELARA [Suspect]
     Active Substance: USTEKINUMAB
     Dosage: 90 MG, CYCLIC EVERY 12 WEEKS
     Route: 058
     Dates: start: 20170828, end: 20171027
  16. ECO [Concomitant]
     Indication: PRODUCT USED FOR UNKNOWN INDICATION
     Dosage: UNK
     Dates: start: 20180323, end: 201804
  17. METHOTREXATE. [Suspect]
     Active Substance: METHOTREXATE
     Indication: PRODUCT USED FOR UNKNOWN INDICATION
     Dosage: UNK
     Dates: start: 20180717, end: 20181009
  18. REMICADE [Suspect]
     Active Substance: INFLIXIMAB
     Dosage: 420 MILLIGRAM, EVERY EIGHT WEEKS
     Route: 042
     Dates: start: 20150716, end: 20151126
  19. LOCAPRED [Concomitant]
     Active Substance: DESONIDE
     Indication: PRODUCT USED FOR UNKNOWN INDICATION
     Dosage: UNK
     Dates: start: 20180323
  20. KARDEGIC [Concomitant]
     Active Substance: ASPIRIN DL-LYSINE
     Dosage: 75 MG, 1X/DAY
     Route: 048
     Dates: start: 20130620
  21. COLD CREAM NATUREL [Concomitant]
     Dosage: UNK
     Dates: start: 20180323, end: 20180423
  22. ACITRETIN. [Suspect]
     Active Substance: ACITRETIN
     Dosage: 10 MILLIGRAM, QD
     Route: 048
     Dates: start: 20170728, end: 20180126
  23. ENBREL [Suspect]
     Active Substance: ETANERCEPT
     Indication: PSORIASIS
     Dosage: 50 MG, WEEKLY
     Route: 058
     Dates: start: 20141002, end: 20150323
  24. REMICADE [Suspect]
     Active Substance: INFLIXIMAB
     Dosage: 420 MILLIGRAM, EVERY 2 WEEKS
     Route: 042
     Dates: start: 20150605, end: 20150618
  25. REMICADE [Suspect]
     Active Substance: INFLIXIMAB
     Indication: PRODUCT USED FOR UNKNOWN INDICATION
     Dosage: 400 MG, EVERY 8 WEEKS
     Route: 065
     Dates: start: 20160704, end: 20160704
  26. REMICADE [Suspect]
     Active Substance: INFLIXIMAB
     Dosage: 415 MG, EVERY 8 WEEKS
     Route: 065
     Dates: start: 20160202, end: 20160325
  27. STRESAM [Concomitant]
     Active Substance: ETIFOXINE
     Indication: PRODUCT USED FOR UNKNOWN INDICATION
     Dosage: UNK
     Dates: start: 20180123

REACTIONS (7)
  - Rectal haemorrhage [Recovered/Resolved with Sequelae]
  - Dermatitis exfoliative generalised [Fatal]
  - Cutaneous T-cell lymphoma [Not Recovered/Not Resolved]
  - Drug ineffective [Recovering/Resolving]
  - Psoriasis [Recovering/Resolving]
  - Pruritus [Recovering/Resolving]
  - Tooth abscess [Recovering/Resolving]

NARRATIVE: CASE EVENT DATE: 20150330
